FAERS Safety Report 9015399 (Version 2)
Quarter: 2013Q1

REPORT INFORMATION
  Report Type: Spontaneous
  Country: QA (occurrence: None)
  Receive Date: 20130103
  Receipt Date: 20130130
  Transmission Date: 20140127
  Serious: Yes (Other)
  Sender: FDA-Public Use
  Company Number: THQ2012A11558

PATIENT
  Age: 63 Year
  Sex: Female

DRUGS (4)
  1. LANSOPRAZOLE [Suspect]
     Indication: HYPERCHLORHYDRIA
     Dosage: 30 MG (30 MG, 1 IN 1 D)
     Route: 048
     Dates: start: 2002, end: 20121106
  2. DIOVAN [Concomitant]
  3. INDAPAMIDE [Concomitant]
  4. BENDROFLUAZIDE [Concomitant]

REACTIONS (4)
  - Loss of consciousness [None]
  - Blood pressure increased [None]
  - Visual impairment [None]
  - Fall [None]
